FAERS Safety Report 5337935-1 (Version None)
Quarter: 2007Q2

REPORT INFORMATION
  Report Type: 
  Country: None (occurrence: None)
  Receive Date: 20070327
  Receipt Date: 20070127
  Transmission Date: 20071010
  Serious: No
  Sender: FDA-Public Use
  Company Number: 222142

PATIENT
  Age: 70 Year
  Sex: Male

DRUGS (5)
  1. AVASTIN [Suspect]
     Dates: start: 20051109
  2. FLUOROURACIL [Concomitant]
  3. LEUCOVORIN CALCIUM [Concomitant]
  4. OXALIPLATIN [Concomitant]
  5. NEULASTA [Concomitant]

REACTIONS (6)
  - ASTHENIA [None]
  - NAUSEA [None]
  - PARAESTHESIA [None]
  - PERIPHERAL COLDNESS [None]
  - PHARYNGOLARYNGEAL PAIN [None]
  - VISION BLURRED [None]
